FAERS Safety Report 6971509-1 (Version None)
Quarter: 2010Q3

REPORT INFORMATION
  Report Type: 
  Country: None (occurrence: None)
  Receive Date: 20100908
  Receipt Date: 20100827
  Transmission Date: 20110219
  Serious: Yes (Other)
  Sender: FDA-Public Use
  Company Number: US-PFIZER INC-2010108443

PATIENT
  Sex: Female
  Weight: 84 kg

DRUGS (3)
  1. CHANTIX [Suspect]
     Indication: SMOKING CESSATION THERAPY
     Dosage: 0.5 MG, UNK
     Route: 048
     Dates: start: 20100816, end: 20100826
  2. EFFEXOR [Concomitant]
     Indication: ANXIETY
     Dosage: UNK
  3. EFFEXOR [Concomitant]
     Indication: DEPRESSION

REACTIONS (3)
  - DEPRESSION [None]
  - HEART RATE INCREASED [None]
  - NERVOUSNESS [None]
